FAERS Safety Report 9771384 (Version 1)
Quarter: 2013Q4

REPORT INFORMATION
  Report Type: Spontaneous
  Country: US (occurrence: US)
  Receive Date: 20131218
  Receipt Date: 20131218
  Transmission Date: 20140711
  Serious: Yes (Other)
  Sender: FDA-Public Use
  Company Number: US-JNJFOC-20131206816

PATIENT
  Age: 53 Year
  Sex: Male
  Weight: 111.13 kg

DRUGS (2)
  1. ROGAINE EXTRA STRENGTH FOR MEN SCENTED [Suspect]
     Route: 061
  2. ROGAINE EXTRA STRENGTH FOR MEN [Suspect]
     Indication: ALOPECIA
     Dosage: ABOUT A CAPFUL
     Route: 061
     Dates: start: 2010

REACTIONS (5)
  - Condition aggravated [Unknown]
  - Blister [Unknown]
  - Burning sensation [Unknown]
  - Application site discharge [Not Recovered/Not Resolved]
  - Rash [Not Recovered/Not Resolved]
